FAERS Safety Report 7561803-8 (Version None)
Quarter: 2011Q2

REPORT INFORMATION
  Report Type: 
  Country: None (occurrence: None)
  Receive Date: 20110621
  Receipt Date: 20110616
  Transmission Date: 20111010
  Serious: Yes (Other)
  Sender: FDA-Public Use
  Company Number: CHPA2011US08094

PATIENT
  Age: 46 Year
  Sex: Female
  Weight: 72.562 kg

DRUGS (4)
  1. BENEFIBER W/ WHEAT DEXTRIN [Suspect]
     Indication: DIARRHOEA
  2. BENEFIBER W/ WHEAT DEXTRIN [Suspect]
     Indication: IRRITABLE BOWEL SYNDROME
     Dosage: 2 TSP, QD
     Route: 048
  3. BENEFIBER W/ WHEAT DEXTRIN [Suspect]
     Indication: BOWEL MOVEMENT IRREGULARITY
  4. ANTIBIOTICS [Concomitant]
     Dosage: UNK, UNK

REACTIONS (6)
  - NEURALGIA [None]
  - DRUG INEFFECTIVE FOR UNAPPROVED INDICATION [None]
  - INTERVERTEBRAL DISC DEGENERATION [None]
  - INTERVERTEBRAL DISC PROTRUSION [None]
  - INTERVERTEBRAL DISC OPERATION [None]
  - OFF LABEL USE [None]
